FAERS Safety Report 20493319 (Version 1)
Quarter: 2022Q1

REPORT INFORMATION
  Report Type: Spontaneous
  Country: US (occurrence: US)
  Receive Date: 20220220
  Receipt Date: 20220220
  Transmission Date: 20220423
  Serious: Yes (Hospitalization, Other)
  Sender: FDA-Public Use
  Company Number: US-LUNDBECK-DKLU3044036

PATIENT
  Age: 20 Year
  Sex: Male
  Weight: 81.8 kg

DRUGS (22)
  1. SABRIL [Suspect]
     Active Substance: VIGABATRIN
     Indication: Partial seizures
     Dosage: OVERDOSE: 4000MG DAILY
     Route: 048
     Dates: start: 20160329
  2. SABRIL [Suspect]
     Active Substance: VIGABATRIN
     Indication: Focal dyscognitive seizures
  3. SABRIL [Suspect]
     Active Substance: VIGABATRIN
     Indication: Epilepsy
  4. SABRIL [Suspect]
     Active Substance: VIGABATRIN
     Indication: Status epilepticus
  5. SABRIL [Suspect]
     Active Substance: VIGABATRIN
     Indication: Seizure
  6. TYLENOL [Concomitant]
     Active Substance: ACETAMINOPHEN
     Indication: Product used for unknown indication
     Route: 048
  7. ONFI [Concomitant]
     Active Substance: CLOBAZAM
     Indication: Seizure
     Route: 065
  8. ALBUTEROL SULFATE [Concomitant]
     Active Substance: ALBUTEROL SULFATE
     Indication: Asthma
     Dosage: 2 PUFFS INTO LUNGS EVERY 4 HOURS AS NEEDED
     Route: 065
  9. ALBUTEROL SULFATE [Concomitant]
     Active Substance: ALBUTEROL SULFATE
     Indication: Wheezing
  10. ALBUTEROL SULFATE [Concomitant]
     Active Substance: ALBUTEROL SULFATE
     Indication: Dyspnoea
  11. CALCIUM CARBONATE - VITAMIN D3 [Concomitant]
     Indication: Seizure
     Route: 048
  12. TEGRETOL XR [Concomitant]
     Active Substance: CARBAMAZEPINE
     Indication: Seizure
     Route: 048
  13. TEGRETOL XR [Concomitant]
     Active Substance: CARBAMAZEPINE
     Route: 048
  14. KLONOPIN [Concomitant]
     Active Substance: CLONAZEPAM
     Indication: Partial seizures
     Dosage: 1 TAB FOR SEIZURE LASTING GREATER THAN 5 MINS, MAY REPEAT IN 15MINS IF SEIZURE DOES NOT RESOLVED
     Route: 048
  15. KLONOPIN [Concomitant]
     Active Substance: CLONAZEPAM
     Indication: Focal dyscognitive seizures
  16. ADVIL [Concomitant]
     Active Substance: IBUPROFEN
     Indication: Product used for unknown indication
     Route: 048
  17. MELATONIN [Concomitant]
     Active Substance: MELATONIN
     Indication: Seizure
     Dosage: 1 OR 2 TABS
     Route: 065
  18. VITAMINS [Concomitant]
     Active Substance: VITAMINS
     Indication: Seizure
     Route: 048
  19. PHENOBARBITAL SODIUM [Concomitant]
     Active Substance: PHENOBARBITAL SODIUM
     Indication: Seizure
     Route: 065
  20. PHENOBARBITAL SODIUM [Concomitant]
     Active Substance: PHENOBARBITAL SODIUM
     Route: 065
  21. TOPAMAX [Concomitant]
     Active Substance: TOPIRAMATE
     Indication: Seizure
     Route: 065
  22. TOPAMAX [Concomitant]
     Active Substance: TOPIRAMATE
     Route: 065

REACTIONS (4)
  - Psychogenic seizure [Unknown]
  - Partial seizures [Unknown]
  - Change in seizure presentation [Recovered/Resolved]
  - Prescribed overdose [Unknown]

NARRATIVE: CASE EVENT DATE: 20220126
